FAERS Safety Report 18360924 (Version 17)
Quarter: 2025Q1

REPORT INFORMATION
  Report Type: Report from Study
  Country: US (occurrence: US)
  Receive Date: 20201008
  Receipt Date: 20250206
  Transmission Date: 20250409
  Serious: Yes (Other)
  Sender: TAKEDA
  Company Number: US-SHIRE-US202032496

PATIENT
  Age: 35 Year
  Sex: Female
  Weight: 63 kg

DRUGS (20)
  1. HUMAN IMMUNOGLOBULIN G [Suspect]
     Active Substance: HUMAN IMMUNOGLOBULIN G
     Indication: Immunodeficiency common variable
     Dosage: 20 GRAM, Q2WEEKS
     Dates: start: 20200825
  2. HUMAN IMMUNOGLOBULIN G [Suspect]
     Active Substance: HUMAN IMMUNOGLOBULIN G
     Indication: Congenital hypogammaglobulinaemia
     Dosage: 20 GRAM, Q2WEEKS
     Dates: start: 20200922
  3. EPINEPHRINE [Concomitant]
     Active Substance: EPINEPHRINE
  4. ACETAMINOPHEN [Concomitant]
     Active Substance: ACETAMINOPHEN
  5. DIPHENHYDRAMINE [Concomitant]
     Active Substance: DIPHENHYDRAMINE
  6. Lmx [Concomitant]
  7. NEXIUM [Concomitant]
     Active Substance: ESOMEPRAZOLE MAGNESIUM
  8. SEROQUEL [Concomitant]
     Active Substance: QUETIAPINE FUMARATE
  9. VALIUM [Concomitant]
     Active Substance: DIAZEPAM
  10. PROTONIX [Concomitant]
     Active Substance: PANTOPRAZOLE SODIUM
  11. ZOFRAN [Concomitant]
     Active Substance: ONDANSETRON HYDROCHLORIDE
  12. LEXAPRO [Concomitant]
     Active Substance: ESCITALOPRAM OXALATE
  13. IBUPROFEN [Concomitant]
     Active Substance: IBUPROFEN
  14. PYRIDIUM [Concomitant]
     Active Substance: PHENAZOPYRIDINE
  15. AMBIEN [Concomitant]
     Active Substance: ZOLPIDEM TARTRATE
  16. LINZESS [Concomitant]
     Active Substance: LINACLOTIDE
  17. PYRIDIUM [Concomitant]
     Active Substance: PHENAZOPYRIDINE
  18. DIETHYLPROPION HYDROCHLORIDE [Concomitant]
     Active Substance: DIETHYLPROPION HYDROCHLORIDE
  19. OXYCODONE HYDROCHLORIDE [Concomitant]
     Active Substance: OXYCODONE HYDROCHLORIDE
  20. DIPHENHYDRAMINE HYDROCHLORIDE [Concomitant]
     Active Substance: DIPHENHYDRAMINE HYDROCHLORIDE

REACTIONS (22)
  - Postoperative wound infection [Unknown]
  - Dermatitis contact [Unknown]
  - COVID-19 [Unknown]
  - Urinary tract infection [Unknown]
  - Cystitis bacterial [Unknown]
  - Sinonasal obstruction [Unknown]
  - Pharyngitis streptococcal [Unknown]
  - Carpal tunnel syndrome [Unknown]
  - Device infusion issue [Unknown]
  - Needle issue [Unknown]
  - Liquid product physical issue [Unknown]
  - Incorrect dose administered [Unknown]
  - Inappropriate schedule of product administration [Unknown]
  - Upper respiratory tract infection [Unknown]
  - Sinusitis [Unknown]
  - Influenza [Unknown]
  - Oedema [Unknown]
  - Pain in extremity [Unknown]
  - Erythema [Unknown]
  - Injection site pain [Unknown]
  - Infusion site swelling [Unknown]
  - Pruritus [Unknown]

NARRATIVE: CASE EVENT DATE: 20201026
